FAERS Safety Report 9307054 (Version 2)
Quarter: 2013Q4

REPORT INFORMATION
  Report Type: Spontaneous
  Country: US (occurrence: US)
  Receive Date: 20130523
  Receipt Date: 20131115
  Transmission Date: 20140711
  Serious: Yes (Hospitalization)
  Sender: FDA-Public Use
  Company Number: US-B.I. PHARMACEUTICALS,INC./RIDGEFIELD-2013-BI-14414BP

PATIENT
  Sex: Female
  Weight: 57.15 kg

DRUGS (9)
  1. PRADAXA [Suspect]
     Indication: ANTICOAGULANT THERAPY
     Dosage: 300 MG
     Route: 048
     Dates: start: 20111012, end: 20120209
  2. ACTONEL [Concomitant]
  3. MECLIZINE [Concomitant]
  4. MOBIC [Concomitant]
  5. PIROXICAM [Concomitant]
  6. RIFAMPIN [Concomitant]
  7. SYNTHROID [Concomitant]
  8. VALIUM [Concomitant]
  9. NITROGLYCERIN [Concomitant]

REACTIONS (2)
  - Gastrointestinal haemorrhage [Unknown]
  - Anaemia [Unknown]
